FAERS Safety Report 25684907 (Version 2)
Quarter: 2025Q3

REPORT INFORMATION
  Report Type: Spontaneous
  Country: US (occurrence: US)
  Receive Date: 20250815
  Receipt Date: 20250819
  Transmission Date: 20251021
  Serious: Yes (Other)
  Sender: NOVARTIS
  Company Number: US-002147023-NVSC2025US126408

PATIENT
  Sex: Female

DRUGS (1)
  1. TEGRETOL XR [Suspect]
     Active Substance: CARBAMAZEPINE
     Indication: Epilepsy
     Route: 048
     Dates: start: 1990

REACTIONS (3)
  - Seizure [Unknown]
  - Scar [Unknown]
  - Product availability issue [Unknown]
